FAERS Safety Report 9177597 (Version 1)
Quarter: 2013Q1

REPORT INFORMATION
  Report Type: Spontaneous
  Country: US (occurrence: US)
  Receive Date: 20130321
  Receipt Date: 20130321
  Transmission Date: 20140127
  Serious: Yes (Hospitalization)
  Sender: FDA-Public Use
  Company Number: US-PFIZER INC-HQWYE626126SEP05

PATIENT
  Age: 51 Year
  Sex: Male
  Weight: 87.5 kg

DRUGS (11)
  1. TYGACIL [Suspect]
     Indication: MYCOBACTERIUM CHELONAE INFECTION
     Dosage: 100 MG, 2X/DAY
     Route: 042
     Dates: start: 20050910, end: 20050914
  2. AMIKACIN [Concomitant]
     Route: 055
  3. ASCORBIC ACID, ERGOCALCIFEROL, FOLIC ACID, RETINOL, TOCOPHEROL, VITAMI [Concomitant]
     Route: 065
  4. AZITHROMYCIN [Concomitant]
     Route: 065
  5. PULMOZYME [Concomitant]
     Route: 065
  6. LACTOBACILLUS ACIDOPHILUS [Concomitant]
     Route: 065
  7. ZYVOX [Concomitant]
     Route: 065
  8. CLARITIN [Concomitant]
     Route: 065
  9. PRILOSEC [Concomitant]
     Route: 065
  10. ALBUTEROL [Concomitant]
     Route: 065
  11. NASACORT [Concomitant]
     Route: 065

REACTIONS (2)
  - Pancreatitis [Recovered/Resolved]
  - Headache [Unknown]
